FAERS Safety Report 9453604 (Version 1)
Quarter: 2013Q3

REPORT INFORMATION
  Report Type: Spontaneous
  Country: FR (occurrence: FR)
  Receive Date: 20130812
  Receipt Date: 20130812
  Transmission Date: 20140515
  Serious: Yes (Other)
  Sender: FDA-Public Use
  Company Number: FR-PFIZER INC-2013231465

PATIENT
  Age: 84 Year
  Sex: Male

DRUGS (5)
  1. PRAMIPEXOLE DIHYDROCHLORIDE [Suspect]
     Indication: RESTLESS LEGS SYNDROME
     Dosage: 0.7 MG, UNK
  2. CITALOPRAM HBR [Suspect]
     Indication: DEPRESSION
     Dosage: UNK
  3. GABAPENTIN [Suspect]
     Indication: RESTLESS LEGS SYNDROME
     Dosage: UNK
  4. CODEINE [Suspect]
     Indication: RESTLESS LEGS SYNDROME
     Dosage: UNK
  5. BROMOCRIPTINE [Suspect]
     Indication: RESTLESS LEGS SYNDROME
     Dosage: UNK

REACTIONS (7)
  - Psychiatric symptom [Unknown]
  - Impulse-control disorder [Unknown]
  - Drug withdrawal syndrome [Unknown]
  - Depression [Recovering/Resolving]
  - Apathy [Unknown]
  - Decreased interest [Unknown]
  - Drug ineffective [Unknown]
